FAERS Safety Report 8350770-5 (Version None)
Quarter: 2012Q2

REPORT INFORMATION
  Report Type: 
  Country: None (occurrence: None)
  Receive Date: 20120510
  Receipt Date: 20120508
  Transmission Date: 20120825
  Serious: Yes (Hospitalization)
  Sender: FDA-Public Use
  Company Number: US-GLAXOSMITHKLINE-A0976999A

PATIENT
  Age: 76 Year
  Sex: Female
  Weight: 67 kg

DRUGS (17)
  1. ULTRAM [Concomitant]
  2. INVESTIGATIONAL STUDY DRUG [Suspect]
     Indication: MULTIPLE MYELOMA
     Dosage: 5.5MG CYCLIC
     Route: 048
     Dates: start: 20120409
  3. ZOVIRAX [Concomitant]
  4. NYSTATIN [Concomitant]
  5. DETROL LA [Concomitant]
  6. SENOKOT [Concomitant]
  7. ROBAXIN [Concomitant]
  8. LOPRESSOR [Concomitant]
  9. OXYCONTIN [Concomitant]
  10. ZOCOR [Concomitant]
  11. PRINIVIL [Concomitant]
  12. VITAMIN D [Concomitant]
  13. COLACE [Concomitant]
  14. PREDNISONE TAB [Suspect]
     Indication: MULTIPLE MYELOMA
     Dosage: 100MG CYCLIC
     Route: 048
     Dates: start: 20120409
  15. PRILOSEC [Concomitant]
  16. ZOLOFT [Concomitant]
  17. MELPHALAN HYDROCHLORIDE [Suspect]
     Indication: MULTIPLE MYELOMA
     Dosage: 10MG CYCLIC
     Route: 048
     Dates: start: 20120409

REACTIONS (3)
  - THROMBOCYTOPENIA [None]
  - OESOPHAGEAL ULCER [None]
  - OESOPHAGEAL ULCER HAEMORRHAGE [None]
